FAERS Safety Report 14745218 (Version 1)
Quarter: 2018Q2

REPORT INFORMATION
  Report Type: Spontaneous
  Country: FR (occurrence: FR)
  Receive Date: 20180411
  Receipt Date: 20180411
  Transmission Date: 20180711
  Serious: Yes (Hospitalization)
  Sender: FDA-Public Use
  Company Number: FR-MERCK KGAA-2045532

PATIENT
  Age: 47 Year
  Sex: Male

DRUGS (1)
  1. NOVOTHYROX [Suspect]
     Active Substance: LEVOTHYROXINE SODIUM
     Indication: HYPOTHYROIDISM
     Dates: start: 201703, end: 201709

REACTIONS (11)
  - Fatigue [Recovering/Resolving]
  - Muscle spasms [Recovering/Resolving]
  - Affect lability [Recovering/Resolving]
  - Communication disorder [Recovering/Resolving]
  - General physical condition abnormal [Recovering/Resolving]
  - Increased appetite [Recovering/Resolving]
  - Dizziness [Recovering/Resolving]
  - Psychotic disorder [Recovering/Resolving]
  - Insomnia [Recovering/Resolving]
  - Bipolar disorder [Recovering/Resolving]
  - Blood cholesterol abnormal [Recovering/Resolving]

NARRATIVE: CASE EVENT DATE: 201703
